FAERS Safety Report 5794624-7 (Version None)
Quarter: 2008Q2

REPORT INFORMATION
  Report Type: 
  Country: None (occurrence: None)
  Receive Date: 20080625
  Receipt Date: 20080620
  Transmission Date: 20081010
  Serious: Yes (Death, Other)
  Sender: FDA-Public Use
  Company Number: 2008SP012215

PATIENT
  Sex: Male

DRUGS (2)
  1. TEMODAL [Suspect]
     Indication: METASTASES TO CENTRAL NERVOUS SYSTEM
     Dosage: 220 MG; QD; PO
     Route: 048
     Dates: start: 20061101, end: 20061101
  2. FORTECORTIN [Concomitant]

REACTIONS (2)
  - HEMIPARESIS [None]
  - VISUAL DISTURBANCE [None]
